FAERS Safety Report 5466888-0 (Version None)
Quarter: 2007Q3

REPORT INFORMATION
  Report Type: 
  Country: None (occurrence: None)
  Receive Date: 20070925
  Receipt Date: 20070920
  Transmission Date: 20080115
  Serious: Yes (Death)
  Sender: FDA-Public Use
  Company Number: AU-AVENTIS-200718299GDDC

PATIENT
  Age: 66 Year
  Sex: Female

DRUGS (11)
  1. LANTUS [Suspect]
     Indication: TYPE 2 DIABETES MELLITUS
     Dates: start: 20061001
  2. AUTOPEN INSULIN INJECTION PEN [Suspect]
  3. ZOCOR [Concomitant]
     Route: 048
  4. ISOPTIN [Concomitant]
     Route: 048
  5. VENTOLINE                          /00139501/ [Concomitant]
     Route: 055
  6. NITRO-DUR [Concomitant]
  7. MAREVAN [Concomitant]
  8. MAREVAN [Concomitant]
  9. LANOXIN [Concomitant]
  10. OXIS                               /00958001/ [Concomitant]
  11. NOVORAPID FLEXPEN [Concomitant]

REACTIONS (4)
  - CARDIO-RESPIRATORY ARREST [None]
  - CONGESTIVE CARDIOMYOPATHY [None]
  - MYOCARDIAL INFARCTION [None]
  - MYOCARDIAL ISCHAEMIA [None]
